FAERS Safety Report 20060327 (Version 1)
Quarter: 2021Q4

REPORT INFORMATION
  Report Type: Spontaneous
  Country: US (occurrence: US)
  Receive Date: 20211112
  Receipt Date: 20211112
  Transmission Date: 20220304
  Serious: No
  Sender: FDA-Public Use
  Company Number: US-BEH-2021138219

PATIENT
  Sex: Female

DRUGS (1)
  1. HIZENTRA [Suspect]
     Active Substance: HUMAN IMMUNOGLOBULIN G
     Route: 065

REACTIONS (10)
  - Fatigue [Unknown]
  - Recalled product administered [Unknown]
  - Erythema [Unknown]
  - Recalled product administered [Unknown]
  - Malabsorption from injection site [Unknown]
  - Recalled product administered [Unknown]
  - Injection site induration [Unknown]
  - Recalled product administered [Unknown]
  - Injection site pruritus [Unknown]
  - Recalled product administered [Unknown]
